FAERS Safety Report 6192406-8 (Version None)
Quarter: 2009Q2

REPORT INFORMATION
  Report Type: 
  Country: None (occurrence: None)
  Receive Date: 20090513
  Receipt Date: 20090513
  Transmission Date: 20091009
  Serious: Yes (Disabling, Other)
  Sender: FDA-Public Use
  Company Number: None

PATIENT
  Age: 81 Year
  Sex: Female
  Weight: 66.6788 kg

DRUGS (1)
  1. CARDIZEM CD [Suspect]
     Indication: HEART RATE IRREGULAR
     Dosage: 1 CAPSULE DAILY MOUTH
     Route: 048
     Dates: start: 20090410, end: 20090412

REACTIONS (3)
  - DYSPHAGIA [None]
  - GINGIVAL SWELLING [None]
  - MACULAR DEGENERATION [None]
